FAERS Safety Report 6550643-4 (Version None)
Quarter: 2010Q1

REPORT INFORMATION
  Report Type: 
  Country: None (occurrence: None)
  Receive Date: 20100122
  Receipt Date: 20100122
  Transmission Date: 20100710
  Serious: Yes (Hospitalization)
  Sender: FDA-Public Use
  Company Number: None

PATIENT
  Sex: Female
  Weight: 69.3 kg

DRUGS (4)
  1. OXALIPLATIN [Suspect]
     Indication: GASTRIC CANCER
     Dosage: OXALIPLATIN DAY 1 + 15 IV
     Route: 042
     Dates: start: 20090825, end: 20100112
  2. LEUCOVORIN CALCIUM [Suspect]
     Indication: GASTRIC CANCER
     Dosage: LEUCOVORIN DAY 1 + 15 IV
     Route: 042
     Dates: start: 20090825, end: 20100112
  3. 5-FLUOROURACIL [Suspect]
     Indication: GASTRIC CANCER
     Dosage: 5-FLUOROURACIL DAY 1 + 15 IVP
     Route: 042
     Dates: start: 20090825, end: 20100112
  4. 5-FLUOROURACIL [Suspect]
     Indication: GASTRIC CANCER
     Dosage: 5-FLUOROURACIL DAY 1-3 CIVI
     Route: 042
     Dates: start: 20090825, end: 20100112

REACTIONS (1)
  - ATRIAL FIBRILLATION [None]
